FAERS Safety Report 5623187-1 (Version None)
Quarter: 2008Q1

REPORT INFORMATION
  Report Type: 
  Country: None (occurrence: None)
  Receive Date: 20080212
  Receipt Date: 20080201
  Transmission Date: 20080703
  Serious: Yes (Hospitalization)
  Sender: FDA-Public Use
  Company Number: IT-BAYER-200812495GPV

PATIENT
  Age: 69 Year
  Sex: Female

DRUGS (4)
  1. ACETYLSALICYLIC ACID SRT [Suspect]
     Indication: ANTICOAGULANT THERAPY
     Dosage: TOTAL DAILY DOSE: 100 MG  UNIT DOSE: 100 MG
     Route: 048
     Dates: start: 20030131, end: 20080127
  2. LIBRADIN (BARNIDIPINE) [Concomitant]
     Indication: DRUG USE FOR UNKNOWN INDICATION
     Route: 048
     Dates: start: 20030131, end: 20080127
  3. LOBIVON (NEBIVOLOLUM) [Concomitant]
     Indication: HYPERTENSION
     Route: 048
     Dates: start: 20030131, end: 20080127
  4. CRESTOR [Concomitant]
     Indication: HYPERTENSION
     Route: 048
     Dates: start: 20030131, end: 20080127

REACTIONS (1)
  - DUODENAL ULCER HAEMORRHAGE [None]
